FAERS Safety Report 18163069 (Version 1)
Quarter: 2020Q3

REPORT INFORMATION
  Report Type: Spontaneous
  Country: US (occurrence: US)
  Receive Date: 20200818
  Receipt Date: 20200818
  Transmission Date: 20201103
  Serious: Yes (Hospitalization)
  Sender: FDA-Public Use
  Company Number: None

PATIENT
  Age: 63 Year
  Sex: Female
  Weight: 87.5 kg

DRUGS (2)
  1. CAPECITABINE. [Suspect]
     Active Substance: CAPECITABINE
     Indication: METASTASES TO MENINGES
     Route: 048
     Dates: start: 20200702, end: 20200812
  2. TUCATINIB [Suspect]
     Active Substance: TUCATINIB
     Indication: METASTASES TO MENINGES
     Route: 048
     Dates: start: 20200702, end: 20200812

REACTIONS (1)
  - CSF test abnormal [None]

NARRATIVE: CASE EVENT DATE: 20200817
